FAERS Safety Report 7056414-7 (Version None)
Quarter: 2010Q4

REPORT INFORMATION
  Report Type: 
  Country: None (occurrence: None)
  Receive Date: 20101021
  Receipt Date: 20101014
  Transmission Date: 20110411
  Serious: Yes (Other)
  Sender: FDA-Public Use
  Company Number: US-US-EMD SERONO, INC.-7022524

PATIENT
  Sex: Female
  Weight: 81 kg

DRUGS (8)
  1. REBIF [Suspect]
     Indication: MULTIPLE SCLEROSIS
     Route: 058
     Dates: start: 20100716, end: 20100101
  2. REBIF [Suspect]
     Route: 058
     Dates: start: 20100101
  3. NORVASC [Concomitant]
     Indication: BLOOD PRESSURE
  4. LEVOXYL [Concomitant]
     Indication: HYPOTHYROIDISM
  5. PROZAC [Concomitant]
     Indication: DEPRESSED MOOD
  6. PLAQEINIL [Concomitant]
     Indication: SYSTEMIC LUPUS ERYTHEMATOSUS
  7. SOLU-MEDROL [Concomitant]
     Indication: MULTIPLE SCLEROSIS
  8. HYDROCODONE [Concomitant]
     Indication: PAIN

REACTIONS (5)
  - CHILLS [None]
  - FEELING COLD [None]
  - HYPERHIDROSIS [None]
  - MUSCULAR WEAKNESS [None]
  - OESOPHAGEAL DISORDER [None]
